FAERS Safety Report 7288977-0 (Version None)
Quarter: 2011Q1

REPORT INFORMATION
  Report Type: 
  Country: None (occurrence: None)
  Receive Date: 20110201
  Receipt Date: 20110110
  Transmission Date: 20110831
  Serious: Yes (Other)
  Sender: FDA-Public Use
  Company Number: 20110038

PATIENT

DRUGS (5)
  1. AMPICILLIN [Suspect]
  2. CEFTRIAXONE [Suspect]
  3. FLUCONAZOLE [Suspect]
  4. VANCOMYCIN [Suspect]
  5. PIPERACILLIN AND TAZOBACTAM [Suspect]

REACTIONS (1)
  - DRUG RASH WITH EOSINOPHILIA AND SYSTEMIC SYMPTOMS [None]
